FAERS Safety Report 24537125 (Version 1)
Quarter: 2024Q4

REPORT INFORMATION
  Report Type: Spontaneous
  Country: US (occurrence: US)
  Receive Date: 20241022
  Receipt Date: 20241022
  Transmission Date: 20250115
  Serious: No
  Sender: SANOFI AVENTIS
  Company Number: US-SA-2024SA297706

PATIENT
  Age: 1 Year
  Sex: Male

DRUGS (1)
  1. DUPIXENT [Suspect]
     Active Substance: DUPILUMAB
     Indication: Dermatitis atopic
     Dosage: 200 MG, Q4W
     Route: 058

REACTIONS (7)
  - Eye discharge [Recovered/Resolved]
  - Sleep disorder [Unknown]
  - Dry skin [Unknown]
  - Sinusitis [Unknown]
  - Skin exfoliation [Unknown]
  - Pruritus [Unknown]
  - Nasopharyngitis [Unknown]
